FAERS Safety Report 24848484 (Version 1)
Quarter: 2025Q1

REPORT INFORMATION
  Report Type: Spontaneous
  Country: US (occurrence: US)
  Receive Date: 20250116
  Receipt Date: 20250116
  Transmission Date: 20250408
  Serious: No
  Sender: NOBELPHARMA AMERICA, LLC
  Company Number: US-Nobelpharma America, LLC-NPA-2024-01747

PATIENT
  Sex: Male

DRUGS (2)
  1. HYFTOR [Suspect]
     Active Substance: SIROLIMUS
     Indication: Tuberous sclerosis complex
     Route: 003
     Dates: start: 20231213, end: 20241001
  2. EPIDIOLEX [Concomitant]
     Active Substance: CANNABIDIOL

REACTIONS (1)
  - Drug ineffective [Unknown]
